FAERS Safety Report 20894441 (Version 1)
Quarter: 2022Q2

REPORT INFORMATION
  Report Type: Spontaneous
  Country: US (occurrence: None)
  Receive Date: 20220527
  Receipt Date: 20220527
  Transmission Date: 20220720
  Serious: Yes (Hospitalization)
  Sender: FDA-Public Use
  Company Number: None

PATIENT
  Age: 69 Year
  Sex: Male

DRUGS (1)
  1. ABIRATERONE [Suspect]
     Active Substance: ABIRATERONE
     Dosage: FREQUENCY : DAILY;?
     Dates: start: 20220427, end: 20220513

REACTIONS (6)
  - Fall [None]
  - Traumatic intracranial haemorrhage [None]
  - Central nervous system vasculitis [None]
  - Mental status changes [None]
  - Lethargy [None]
  - Toxic encephalopathy [None]
